FAERS Safety Report 8595162-9 (Version None)
Quarter: 2012Q3

REPORT INFORMATION
  Report Type: 
  Country: None (occurrence: None)
  Receive Date: 20120807
  Receipt Date: 20120807
  Transmission Date: 20120928
  Serious: Yes (Hospitalization)
  Sender: FDA-Public Use
  Company Number: None

PATIENT
  Age: 41 Year
  Sex: Female
  Weight: 98.8842 kg

DRUGS (1)
  1. HCG SOLUTION DIETARY SUPPLEMENT NIGEN BIOTECH, LLC [Suspect]
     Indication: WEIGHT CONTROL
     Dosage: 1 ML 2 TIMES DAILY PO
     Route: 048
     Dates: start: 20120720, end: 20120730

REACTIONS (3)
  - ABDOMINAL PAIN [None]
  - LYMPHADENITIS [None]
  - CONSTIPATION [None]
